FAERS Safety Report 12227581 (Version 1)
Quarter: 2016Q1

REPORT INFORMATION
  Report Type: Spontaneous
  Country: IT (occurrence: ES)
  Receive Date: 20160331
  Receipt Date: 20160331
  Transmission Date: 20160526
  Serious: Yes (Hospitalization)
  Sender: FDA-Public Use
  Company Number: ES-FRI-1000083588

PATIENT
  Age: 45 Year
  Sex: Female

DRUGS (2)
  1. MONUROL [Suspect]
     Active Substance: FOSFOMYCIN TROMETHAMINE
     Indication: URINARY TRACT INFECTION
     Dosage: 3 G
     Route: 048
     Dates: start: 20160115, end: 20160115
  2. AMOXICILINA + CLAVULANICO [Interacting]
     Active Substance: AMOXICILLIN\CLAVULANIC ACID
     Indication: RESPIRATORY TRACT INFECTION
     Dosage: 7875 MG
     Route: 048
     Dates: start: 20160123, end: 20160203

REACTIONS (2)
  - Drug interaction [Recovered/Resolved]
  - Clostridium difficile colitis [Recovered/Resolved]

NARRATIVE: CASE EVENT DATE: 20160205
